FAERS Safety Report 5711868-0 (Version None)
Quarter: 2008Q2

REPORT INFORMATION
  Report Type: 
  Country: None (occurrence: None)
  Receive Date: 20080416
  Receipt Date: 20080402
  Transmission Date: 20081010
  Serious: Yes (Life-Threatening)
  Sender: FDA-Public Use
  Company Number: 2008US001032

PATIENT
  Age: 18 Month
  Sex: Female
  Weight: 8.4 kg

DRUGS (9)
  1. AMBISOME [Suspect]
     Indication: PYREXIA
     Dosage: 25 MG, UID/QD, IV NOS
     Route: 042
     Dates: start: 20080304, end: 20080304
  2. CEFTAZIDIME PENTAHYDRATE [Concomitant]
  3. TIENAM (IMIPENEM, CILASTATIN SODIUM) [Concomitant]
  4. AMIKACIN [Concomitant]
  5. VANCOMYCIN (CANCOMYCIN HYDROCHLORIDE) [Concomitant]
  6. BACTRIM [Concomitant]
  7. CYCLOPHOSPHAMIDE [Concomitant]
  8. DOXORUBICINE (DOXORUBICIN HYDROCHLORIDE) [Concomitant]
  9. VINCRISTINE [Concomitant]

REACTIONS (7)
  - BLOOD PRESSURE ABNORMAL [None]
  - CYANOSIS [None]
  - DISTURBANCE IN ATTENTION [None]
  - HYPERVIGILANCE [None]
  - LIVEDO RETICULARIS [None]
  - PULSE PRESSURE DECREASED [None]
  - TACHYCARDIA [None]
